FAERS Safety Report 23359935 (Version 1)
Quarter: 2024Q1

REPORT INFORMATION
  Report Type: Spontaneous
  Country: US (occurrence: US)
  Receive Date: 20240103
  Receipt Date: 20240103
  Transmission Date: 20240409
  Serious: No
  Sender: FDA-Public Use
  Company Number: US-BIOVITRUM-2023-US-021365

PATIENT
  Sex: Male
  Weight: 11.6 kg

DRUGS (3)
  1. SYNAGIS [Suspect]
     Active Substance: PALIVIZUMAB
     Indication: Ventricular septal defect
     Dosage: MONTHLY
     Route: 030
  2. SYNAGIS [Suspect]
     Active Substance: PALIVIZUMAB
     Indication: Patent ductus arteriosus
  3. SYNAGIS [Suspect]
     Active Substance: PALIVIZUMAB
     Indication: Atrial septal defect

REACTIONS (2)
  - Illness [Unknown]
  - Cough [Unknown]
